FAERS Safety Report 5376858-9 (Version None)
Quarter: 2007Q3

REPORT INFORMATION
  Report Type: 
  Country: None (occurrence: None)
  Receive Date: 20070703
  Receipt Date: 20070626
  Transmission Date: 20080115
  Serious: Yes (Other)
  Sender: FDA-Public Use
  Company Number: US-ASTRAZENECA-2007UW15192

PATIENT
  Age: 57 Year
  Sex: Male
  Weight: 108.9 kg

DRUGS (6)
  1. ATACAND [Suspect]
     Indication: HYPERTENSION
     Route: 048
  2. HYDROCHLOROTHIAZIDE [Concomitant]
  3. ACIPHEX [Concomitant]
  4. TRENTAL [Concomitant]
  5. HYDROXYUREA [Concomitant]
  6. CRESTOR [Concomitant]
     Route: 048

REACTIONS (5)
  - EXTREMITY NECROSIS [None]
  - PAIN IN EXTREMITY [None]
  - SKIN DISCOLOURATION [None]
  - SKIN EXFOLIATION [None]
  - TOE AMPUTATION [None]
